FAERS Safety Report 7913270-X (Version None)
Quarter: 2011Q4

REPORT INFORMATION
  Report Type: 
  Country: None (occurrence: None)
  Receive Date: 20111114
  Receipt Date: 20111103
  Transmission Date: 20120403
  Serious: Yes (Hospitalization)
  Sender: FDA-Public Use
  Company Number: IT-ASTRAZENECA-2011SE64993

PATIENT
  Sex: Male

DRUGS (9)
  1. ZOLOFT [Concomitant]
     Indication: DEPRESSION
     Route: 048
     Dates: start: 20110606, end: 20110621
  2. SEROQUEL [Suspect]
     Route: 048
     Dates: start: 20110621, end: 20110621
  3. DIAZEPAM [Suspect]
     Route: 048
     Dates: start: 20110621, end: 20110621
  4. LENDORMIN [Suspect]
     Indication: DEPRESSION
     Route: 048
     Dates: start: 20110621, end: 20110621
  5. DEPAKENE [Suspect]
     Indication: PERSONALITY DISORDER
     Route: 048
     Dates: start: 20110621, end: 20110621
  6. DEPAKENE [Suspect]
     Route: 048
     Dates: start: 20110606, end: 20110621
  7. OMEPRAZOLE [Concomitant]
     Route: 048
     Dates: start: 20110606, end: 20110621
  8. LASIX [Concomitant]
     Route: 048
     Dates: start: 20110606, end: 20110621
  9. LENDORMIN [Suspect]
     Route: 048
     Dates: start: 20110606, end: 20110621

REACTIONS (3)
  - SOPOR [None]
  - MULTIPLE DRUG OVERDOSE INTENTIONAL [None]
  - BRADYPHRENIA [None]
